FAERS Safety Report 16952926 (Version 1)
Quarter: 2019Q4

REPORT INFORMATION
  Report Type: Spontaneous
  Country: ZA (occurrence: ZA)
  Receive Date: 20191023
  Receipt Date: 20191023
  Transmission Date: 20200122
  Serious: Yes (Other)
  Sender: FDA-Public Use
  Company Number: NVSC2019ZA009337

PATIENT
  Age: 40 Year
  Sex: Female

DRUGS (2)
  1. ESTRADOT [Suspect]
     Active Substance: ESTRADIOL
     Indication: HORMONE REPLACEMENT THERAPY
     Dosage: 50 UG, Q2W
     Route: 062
  2. ESTRADOT [Suspect]
     Active Substance: ESTRADIOL
     Dosage: 25 UG
     Route: 062

REACTIONS (10)
  - Back pain [Recovered/Resolved]
  - Depression [Recovered/Resolved]
  - Suicidal behaviour [Recovered/Resolved]
  - Aggression [Unknown]
  - Aggression [Recovered/Resolved]
  - Mood swings [Unknown]
  - Back pain [Unknown]
  - Mood swings [Recovered/Resolved]
  - Suicidal behaviour [Unknown]
  - Depression [Unknown]

NARRATIVE: CASE EVENT DATE: 20191001
